FAERS Safety Report 8362218-5 (Version None)
Quarter: 2012Q2

REPORT INFORMATION
  Report Type: 
  Country: None (occurrence: None)
  Receive Date: 20120515
  Receipt Date: 20120509
  Transmission Date: 20120825
  Serious: Yes (Life-Threatening, Other)
  Sender: FDA-Public Use
  Company Number: IT-ALLERGAN-1206601US

PATIENT
  Age: 50 Year
  Sex: Male

DRUGS (2)
  1. LUMIGAN [Suspect]
     Indication: OPEN ANGLE GLAUCOMA
     Route: 047
  2. LUMIGAN [Suspect]
     Indication: OPEN ANGLE GLAUCOMA
     Dosage: UNK
     Route: 047

REACTIONS (1)
  - HYPERTENSIVE CRISIS [None]
